FAERS Safety Report 25355054 (Version 2)
Quarter: 2025Q3

REPORT INFORMATION
  Report Type: Spontaneous
  Country: EU (occurrence: EU)
  Receive Date: 20250524
  Receipt Date: 20250710
  Transmission Date: 20251021
  Serious: Yes (Other)
  Sender: AUROBINDO
  Company Number: EU-CINFAGATEW-2025001291

PATIENT
  Age: 87 Year
  Sex: Male

DRUGS (4)
  1. TADALAFIL [Interacting]
     Active Substance: TADALAFIL
     Indication: Male sexual dysfunction
     Route: 048
     Dates: start: 2020, end: 2021
  2. TADALAFIL [Interacting]
     Active Substance: TADALAFIL
     Route: 048
     Dates: start: 2021
  3. ENALAPRIL [Interacting]
     Active Substance: ENALAPRIL
     Indication: Hypertension
     Route: 065
  4. ENALAPRIL [Interacting]
     Active Substance: ENALAPRIL
     Route: 065

REACTIONS (6)
  - Chronic kidney disease [Unknown]
  - Blood pressure decreased [Unknown]
  - Oedema peripheral [Recovered/Resolved]
  - Peripheral swelling [Recovered/Resolved]
  - Blood potassium increased [Recovered/Resolved]
  - Labelled drug-drug interaction issue [Not Recovered/Not Resolved]

NARRATIVE: CASE EVENT DATE: 20200101
